FAERS Safety Report 6271876-0 (Version None)
Quarter: 2009Q3

REPORT INFORMATION
  Report Type: 
  Country: None (occurrence: None)
  Receive Date: 20090717
  Receipt Date: 20090709
  Transmission Date: 20100115
  Serious: Yes (Hospitalization)
  Sender: FDA-Public Use
  Company Number: PHHY2009CA28545

PATIENT

DRUGS (1)
  1. RASILEZ [Suspect]
     Dosage: 150 MG

REACTIONS (1)
  - BRAIN NEOPLASM [None]
